FAERS Safety Report 22971974 (Version 2)
Quarter: 2023Q4

REPORT INFORMATION
  Report Type: Spontaneous
  Country: US (occurrence: US)
  Receive Date: 20230922
  Receipt Date: 20231013
  Transmission Date: 20240110
  Serious: No
  Sender: FDA-Public Use
  Company Number: US-PFIZER INC-PV202300045768

PATIENT
  Age: 8 Year
  Sex: Male

DRUGS (7)
  1. GENOTROPIN [Suspect]
     Active Substance: SOMATROPIN
     Indication: Foetal growth restriction
     Dosage: 0.6 MG, DAILY
     Dates: start: 2023
  2. GENOTROPIN [Suspect]
     Active Substance: SOMATROPIN
     Indication: Chromosomal deletion
  3. ZYRTEC [Suspect]
     Active Substance: CETIRIZINE HYDROCHLORIDE
     Indication: Hypersensitivity
     Dosage: UNK
     Dates: start: 2023
  4. ZYRTEC [Suspect]
     Active Substance: CETIRIZINE HYDROCHLORIDE
     Indication: Wheezing
  5. CLARITIN [Suspect]
     Active Substance: LORATADINE
     Indication: Hypersensitivity
     Dosage: UNK
     Dates: start: 2023
  6. CLARITIN [Suspect]
     Active Substance: LORATADINE
     Indication: Wheezing
  7. SYMBICORT [Concomitant]
     Active Substance: BUDESONIDE\FORMOTEROL FUMARATE DIHYDRATE
     Indication: Restrictive pulmonary disease
     Dosage: UNK (160/4.5MCG; TAKES ONE PUFF IN THE MORNING, TWO PUFFS IN THE AFTERNOON, ONE PUFF AT NIGHT)

REACTIONS (2)
  - Headache [Unknown]
  - Dizziness [Unknown]

NARRATIVE: CASE EVENT DATE: 20230101
